FAERS Safety Report 25051549 (Version 1)
Quarter: 2025Q1

REPORT INFORMATION
  Report Type: Report from Study
  Country: US (occurrence: US)
  Receive Date: 20250307
  Receipt Date: 20250307
  Transmission Date: 20250409
  Serious: Yes (Death, Other)
  Sender: GILEAD
  Company Number: US-GILEAD-2025-0706142

PATIENT
  Sex: Male

DRUGS (19)
  1. AZTREONAM LYSINE [Suspect]
     Active Substance: AZTREONAM LYSINE
     Indication: Cystic fibrosis
     Dosage: 75 MG, TID [FOR 28 DAYS ON FOLLOWED BY 28 DAYS OFF]
     Route: 055
     Dates: start: 20220330
  2. ACIDOPHILUS [Concomitant]
     Active Substance: LACTOBACILLUS ACIDOPHILUS
  3. ADVAIR HFA [Concomitant]
     Active Substance: FLUTICASONE PROPIONATE\SALMETEROL XINAFOATE
  4. ASPIRIN [Concomitant]
     Active Substance: ASPIRIN
  5. AZITHROMYCIN [Concomitant]
     Active Substance: AZITHROMYCIN
  6. BETHKIS [Concomitant]
     Active Substance: TOBRAMYCIN
  7. CLARITIN [Concomitant]
     Active Substance: LORATADINE
  8. CLOTRIMAZOLE [Concomitant]
     Active Substance: CLOTRIMAZOLE
  9. COMBIVENT [Concomitant]
     Active Substance: ALBUTEROL SULFATE\IPRATROPIUM BROMIDE
  10. HALOPERIDOL [Concomitant]
     Active Substance: HALOPERIDOL
  11. HYOSCYAMINE [Concomitant]
     Active Substance: HYOSCYAMINE
  12. KALYDECO [Concomitant]
     Active Substance: IVACAFTOR
  13. LANTUS [Concomitant]
     Active Substance: INSULIN GLARGINE
  14. LORAZEPAM [Concomitant]
     Active Substance: LORAZEPAM
  15. MORPHINE [Concomitant]
     Active Substance: MORPHINE
  16. PULMOZYME [Concomitant]
     Active Substance: DORNASE ALFA
  17. SODIUM CHLORIDE [Concomitant]
     Active Substance: SODIUM CHLORIDE
  18. VITAMIN D3 [Concomitant]
     Active Substance: CHOLECALCIFEROL
  19. ZENPEP [Concomitant]
     Active Substance: PANCRELIPASE AMYLASE\PANCRELIPASE LIPASE\PANCRELIPASE PROTEASE

REACTIONS (1)
  - Death [Fatal]
